FAERS Safety Report 7354853-8 (Version None)
Quarter: 2011Q1

REPORT INFORMATION
  Report Type: 
  Country: None (occurrence: None)
  Receive Date: 20110316
  Receipt Date: 20110311
  Transmission Date: 20110831
  Serious: Yes (Life-Threatening)
  Sender: FDA-Public Use
  Company Number: FR-SANOFI-AVENTIS-2011SA014851

PATIENT
  Age: 32 Year
  Sex: Female

DRUGS (3)
  1. CORDARONE [Concomitant]
     Route: 065
  2. LASIX [Concomitant]
     Route: 065
  3. LOVENOX [Suspect]
     Indication: THROMBOSIS PROPHYLAXIS
     Route: 058
     Dates: start: 20100701, end: 20100927

REACTIONS (5)
  - OFF LABEL USE [None]
  - DRUG EXPOSURE DURING PREGNANCY [None]
  - CARDIAC VALVE REPLACEMENT COMPLICATION [None]
  - UTERINE HAEMORRHAGE [None]
  - ABORTION [None]
